FAERS Safety Report 13046838 (Version 2)
Quarter: 2017Q1

REPORT INFORMATION
  Report Type: Spontaneous
  Country: JP (occurrence: JP)
  Receive Date: 20161220
  Receipt Date: 20170104
  Transmission Date: 20170428
  Serious: Yes (Hospitalization)
  Sender: FDA-Public Use
  Company Number: JP-ELI_LILLY_AND_COMPANY-JP201612003709

PATIENT
  Age: 77 Year
  Sex: Male

DRUGS (11)
  1. SINGULAIR [Concomitant]
     Active Substance: MONTELUKAST SODIUM
     Dosage: UNK
     Route: 048
  2. NEXIUM [Concomitant]
     Active Substance: ESOMEPRAZOLE MAGNESIUM
     Dosage: UNK
     Route: 048
  3. ZALUTIA [Suspect]
     Active Substance: TADALAFIL
     Indication: PRODUCT USED FOR UNKNOWN INDICATION
     Dosage: 5 MG, QD
     Route: 048
     Dates: start: 2015, end: 20161213
  4. FLORID                             /00310801/ [Suspect]
     Active Substance: MICONAZOLE
     Indication: ORAL CANDIDIASIS
     Dosage: UNK
     Route: 061
     Dates: end: 20161201
  5. FLIVAS [Concomitant]
     Active Substance: NAFTOPIDIL
     Dosage: UNK
     Route: 048
  6. AMBROXOL [Concomitant]
     Active Substance: AMBROXOL
     Dosage: UNK
     Route: 048
  7. URSO [Concomitant]
     Active Substance: URSODIOL
     Dosage: UNK
     Route: 048
  8. MIYA-BM [Concomitant]
     Active Substance: CLOSTRIDIUM BUTYRICUM SPORES STRAIN M-55
     Dosage: UNK
     Route: 048
  9. GASMOTIN [Concomitant]
     Active Substance: MOSAPRIDE CITRATE
     Dosage: UNK
     Route: 048
  10. MAGMITT [Concomitant]
     Active Substance: MAGNESIUM OXIDE
     Dosage: UNK
     Route: 048
  11. SYMBICORT [Concomitant]
     Active Substance: BUDESONIDE\FORMOTEROL FUMARATE DIHYDRATE
     Dosage: UNK
     Route: 055

REACTIONS (5)
  - Oral candidiasis [Unknown]
  - Cholelithiasis [Recovered/Resolved]
  - Hypoacusis [Not Recovered/Not Resolved]
  - Pyrexia [Unknown]
  - Hypoacusis [Not Recovered/Not Resolved]

NARRATIVE: CASE EVENT DATE: 2015
